FAERS Safety Report 7505335-1 (Version None)
Quarter: 2011Q2

REPORT INFORMATION
  Report Type: 
  Country: None (occurrence: None)
  Receive Date: 20110526
  Receipt Date: 20110524
  Transmission Date: 20111010
  Serious: No
  Sender: FDA-Public Use
  Company Number: US-PFIZER INC-2011112387

PATIENT
  Sex: Male
  Weight: 81.633 kg

DRUGS (4)
  1. LYRICA [Suspect]
     Indication: HERPES ZOSTER
     Dosage: 75 MG, 3X/DAY
     Route: 048
     Dates: start: 20110520
  2. AMLODIPINE [Concomitant]
     Indication: HYPERTENSION
     Dosage: UNK
  3. ATENOLOL [Concomitant]
     Indication: HYPERTENSION
     Dosage: UNK
  4. LYRICA [Suspect]
     Indication: FIBROMYALGIA

REACTIONS (4)
  - DRY MOUTH [None]
  - CONSTIPATION [None]
  - PAIN [None]
  - EXPIRED DRUG ADMINISTERED [None]
